FAERS Safety Report 13075477 (Version 1)
Quarter: 2016Q4

REPORT INFORMATION
  Report Type: Spontaneous
  Country: US (occurrence: US)
  Receive Date: 20161229
  Receipt Date: 20161229
  Transmission Date: 20170207
  Serious: Yes (Hospitalization)
  Sender: FDA-Public Use
  Company Number: None

PATIENT

DRUGS (1)
  1. PHENYTOIN. [Suspect]
     Active Substance: PHENYTOIN
     Indication: SEIZURE
     Route: 048

REACTIONS (3)
  - Seizure [None]
  - Incorrect dose administered [None]
  - Anticonvulsant drug level above therapeutic [None]

NARRATIVE: CASE EVENT DATE: 20160816
